FAERS Safety Report 5031914-X (Version None)
Quarter: 2006Q2

REPORT INFORMATION
  Report Type: 
  Country: None (occurrence: None)
  Receive Date: 20060619
  Receipt Date: 20060608
  Transmission Date: 20061013
  Serious: Yes (Other)
  Sender: FDA-Public Use
  Company Number: GXKR2006AR03337

PATIENT
  Age: 54 Year
  Sex: Female

DRUGS (3)
  1. RIBAVIRIN [Suspect]
     Indication: HEPATITIS C
     Dosage: 1000 MG QD
  2. PEGASYS [Suspect]
     Indication: HEPATITIS C
     Dosage: 180 UG QW
  3. NIFEDIPINE [Concomitant]

REACTIONS (5)
  - BLOOD CORTICOTROPHIN DECREASED [None]
  - BLOOD THYROID STIMULATING HORMONE DECREASED [None]
  - HYPOPHYSITIS [None]
  - HYPOTHYROIDISM [None]
  - THYROXINE FREE DECREASED [None]
